FAERS Safety Report 13519359 (Version 2)
Quarter: 2018Q1

REPORT INFORMATION
  Report Type: Spontaneous
  Country: CA (occurrence: CA)
  Receive Date: 20170505
  Receipt Date: 20180207
  Transmission Date: 20180508
  Serious: Yes (Other)
  Sender: FDA-Public Use
  Company Number: CA-PFIZER INC-2017196797

PATIENT
  Sex: Female
  Weight: 52 kg

DRUGS (12)
  1. PANTOPRAZOLE [Suspect]
     Active Substance: PANTOPRAZOLE
     Dosage: 40 MG, QD
     Route: 048
  2. LEUCOVORIN. [Suspect]
     Active Substance: LEUCOVORIN
     Dosage: 10 MG, 1/WEEK
  3. MICARDIS [Suspect]
     Active Substance: TELMISARTAN
     Dosage: 80 MG, QD
     Route: 065
  4. TYLENOL [Suspect]
     Active Substance: ACETAMINOPHEN
     Dosage: 1 DF, 1X/DAY
     Route: 065
  5. DIAMICRON [Suspect]
     Active Substance: GLICLAZIDE
     Dosage: 30 MG, UNK
     Route: 065
  6. BACLOFEN. [Suspect]
     Active Substance: BACLOFEN
     Dosage: UNK
     Route: 065
  7. CYMBALTA [Suspect]
     Active Substance: DULOXETINE HYDROCHLORIDE
     Dosage: 30 MG, UNK
     Route: 065
  8. JANUVIA [Suspect]
     Active Substance: SITAGLIPTIN PHOSPHATE
     Dosage: 100 MG, UNK
     Route: 065
  9. PROLIA [Concomitant]
     Active Substance: DENOSUMAB
     Dosage: 60 MG, UNK
     Route: 065
  10. METFORMIN HYDROCHLORIDE. [Suspect]
     Active Substance: METFORMIN HYDROCHLORIDE
     Dosage: 2000 MG, 1X/DAY
     Route: 065
  11. ROSUVASTATIN. [Suspect]
     Active Substance: ROSUVASTATIN
     Dosage: 5 MG, QD
     Route: 065
  12. LEFLUNOMIDE. [Suspect]
     Active Substance: LEFLUNOMIDE
     Dosage: UNK
     Route: 065

REACTIONS (21)
  - Bursitis [Recovering/Resolving]
  - Musculoskeletal pain [Recovering/Resolving]
  - Rotator cuff syndrome [Recovering/Resolving]
  - Hand deformity [Recovering/Resolving]
  - Joint swelling [Recovering/Resolving]
  - Pain [Recovering/Resolving]
  - Haemoglobin increased [Recovering/Resolving]
  - Muscle atrophy [Recovering/Resolving]
  - Pain in extremity [Recovering/Resolving]
  - Osteoarthritis [Recovering/Resolving]
  - Osteoporosis [Recovering/Resolving]
  - Dizziness [Recovering/Resolving]
  - Nausea [Recovering/Resolving]
  - Blood pressure systolic increased [Recovering/Resolving]
  - Joint noise [Recovering/Resolving]
  - Rheumatoid arthritis [Recovering/Resolving]
  - Tendonitis [Recovering/Resolving]
  - Myalgia [Recovering/Resolving]
  - Drug ineffective [Recovering/Resolving]
  - Hypokinesia [Recovering/Resolving]
  - Scoliosis [Recovering/Resolving]
